FAERS Safety Report 5755452-1 (Version None)
Quarter: 2008Q2

REPORT INFORMATION
  Report Type: 
  Country: None (occurrence: None)
  Receive Date: 20080602
  Receipt Date: 20080523
  Transmission Date: 20081010
  Serious: Yes (Hospitalization, Other)
  Sender: FDA-Public Use
  Company Number: US-ABBOTT-08P-163-0453120-00

PATIENT
  Sex: Male
  Weight: 64.468 kg

DRUGS (6)
  1. ADVICOR [Suspect]
     Indication: BLOOD CHOLESTEROL INCREASED
     Dosage: 500/20 MG Q HS
     Route: 048
     Dates: start: 20070301, end: 20070301
  2. ADVICOR [Suspect]
     Dosage: 500/20 MG Q HS
     Route: 048
     Dates: start: 20070401, end: 20071201
  3. ADVICOR [Suspect]
     Dosage: 500/20 MG Q HS
     Route: 048
     Dates: start: 20080201, end: 20080511
  4. HYDROCHLOROTHIAZIDE [Concomitant]
     Indication: BLOOD PRESSURE
     Dosage: 25 MG DAILY
     Route: 048
  5. OLMESARTAN MEDOXOMIL [Concomitant]
     Indication: BLOOD PRESSURE
     Route: 048
     Dates: start: 20050101
  6. OMEPRAZOLE [Concomitant]
     Indication: GASTROOESOPHAGEAL REFLUX DISEASE
     Dosage: 20 MG DAILY

REACTIONS (7)
  - ASTHENIA [None]
  - FALL [None]
  - HIP FRACTURE [None]
  - HOT FLUSH [None]
  - MYALGIA [None]
  - PRURITUS [None]
  - WEIGHT DECREASED [None]
